FAERS Safety Report 21049879 (Version 2)
Quarter: 2022Q4

REPORT INFORMATION
  Report Type: Report from Study
  Country: SI (occurrence: SI)
  Receive Date: 20220706
  Receipt Date: 20221128
  Transmission Date: 20230113
  Serious: Yes (Other)
  Sender: FDA-Public Use
  Company Number: SI-ROCHE-3103236

PATIENT
  Age: 56 Year
  Sex: Female
  Weight: 92 kg

DRUGS (27)
  1. BEVACIZUMAB [Suspect]
     Active Substance: BEVACIZUMAB
     Indication: Non-small cell lung cancer metastatic
     Dosage: 1380 MILLIGRAM
     Route: 065
     Dates: start: 20210609
  2. PACLITAXEL [Suspect]
     Active Substance: PACLITAXEL
     Indication: Non-small cell lung cancer metastatic
     Dosage: 350 MILLIGRAM
     Route: 065
     Dates: start: 20210609
  3. CARBOPLATIN [Suspect]
     Active Substance: CARBOPLATIN
     Indication: Non-small cell lung cancer metastatic
     Dosage: 600 MILLIGRAM
     Route: 065
     Dates: start: 20210609
  4. ATEZOLIZUMAB [Suspect]
     Active Substance: ATEZOLIZUMAB
     Indication: Non-small cell lung cancer metastatic
     Dosage: 1200 MG (RECENT DOSE 17/NOV/2021)
     Route: 065
     Dates: start: 20210609
  5. KYTRIL [Concomitant]
     Active Substance: GRANISETRON HYDROCHLORIDE
     Indication: Adverse event
     Dosage: UNK UNK, BID
     Route: 065
     Dates: start: 20210703
  6. KYTRIL [Concomitant]
     Active Substance: GRANISETRON HYDROCHLORIDE
     Dosage: UNK
     Route: 065
     Dates: start: 20220308
  7. ZIEXTENZO [Concomitant]
     Active Substance: PEGFILGRASTIM-BMEZ
     Dosage: UNK, QD
     Route: 065
     Dates: start: 20220301, end: 20220301
  8. MEDROL [Concomitant]
     Active Substance: METHYLPREDNISOLONE
     Indication: Adverse event
     Dosage: UNK, QD
     Route: 065
     Dates: start: 20220328
  9. MORPHINE [Concomitant]
     Active Substance: MORPHINE
     Dosage: 10 MILLIGRAM
     Route: 065
     Dates: start: 20210630, end: 20220221
  10. REGLAN [Concomitant]
     Active Substance: METOCLOPRAMIDE HYDROCHLORIDE
     Indication: Adverse event
     Dosage: UNK
     Route: 065
     Dates: start: 20220308
  11. REGLAN [Concomitant]
     Active Substance: METOCLOPRAMIDE HYDROCHLORIDE
     Dosage: UNK, BID
     Route: 065
     Dates: start: 20210703
  12. CISPLATIN [Concomitant]
     Active Substance: CISPLATIN
     Indication: Neoplasm malignant
     Dosage: UNK (150)
     Route: 065
  13. ERLOTINIB [Concomitant]
     Active Substance: ERLOTINIB
     Dosage: UNK
     Route: 065
     Dates: start: 20211209, end: 20220306
  14. PANTOPRAZOLE SODIUM [Concomitant]
     Active Substance: PANTOPRAZOLE SODIUM
     Dosage: UNK, QD
     Route: 065
     Dates: start: 20220328
  15. ACETAMINOPHEN\TRAMADOL HYDROCHLORIDE [Concomitant]
     Active Substance: ACETAMINOPHEN\TRAMADOL HYDROCHLORIDE
     Indication: Adverse event
     Dosage: UNK
     Route: 065
  16. IRESSA [Concomitant]
     Active Substance: GEFITINIB
     Indication: Neoplasm malignant
     Dosage: UNK
     Route: 065
  17. Nalgesin [Concomitant]
     Indication: Adverse event
     Dosage: UNK
     Route: 065
  18. DEXAMETHASONE [Concomitant]
     Active Substance: DEXAMETHASONE
     Dosage: UNK, QD
     Route: 065
     Dates: start: 20220504
  19. FOLIC ACID [Concomitant]
     Active Substance: FOLIC ACID
     Dosage: UNK UNK, QD
     Route: 065
     Dates: start: 20220301, end: 20220504
  20. PEMETREXED [Concomitant]
     Active Substance: PEMETREXED
     Dosage: UNK
     Route: 065
  21. PEMETREXED [Concomitant]
     Active Substance: PEMETREXED
     Dosage: UNK
     Route: 065
     Dates: start: 20220307, end: 20220307
  22. OLIVE OIL [Concomitant]
     Active Substance: OLIVE OIL
     Indication: Adverse event
     Dosage: UNK
     Route: 065
     Dates: start: 20220221, end: 20220307
  23. UREA [Concomitant]
     Active Substance: UREA
     Indication: Adverse event
     Dosage: UNK
     Route: 065
     Dates: start: 20220221, end: 20220307
  24. VINORELBINE [Concomitant]
     Active Substance: VINORELBINE TARTRATE
     Indication: Neoplasm malignant
     Dosage: UNK
     Route: 065
  25. QUETIAPINE FUMARATE [Concomitant]
     Active Substance: QUETIAPINE FUMARATE
     Dosage: UNK
     Route: 065
     Dates: start: 20220504
  26. CARBOPLATIN [Concomitant]
     Active Substance: CARBOPLATIN
     Dosage: UNK
     Route: 065
     Dates: start: 20220307, end: 20220404
  27. TAGRISSO [Concomitant]
     Active Substance: OSIMERTINIB
     Indication: Neoplasm malignant
     Dosage: UNK
     Route: 065

REACTIONS (2)
  - Hepatitis [Not Recovered/Not Resolved]
  - Fatigue [Recovered/Resolved]

NARRATIVE: CASE EVENT DATE: 20220308
